FAERS Safety Report 6081879-7 (Version None)
Quarter: 2009Q1

REPORT INFORMATION
  Report Type: 
  Country: None (occurrence: None)
  Receive Date: 20090218
  Receipt Date: 20080502
  Transmission Date: 20090719
  Serious: No
  Sender: FDA-Public Use
  Company Number: US-BRISTOL-MYERS SQUIBB COMPANY-14174544

PATIENT
  Age: 76 Year
  Sex: Female
  Weight: 72 kg

DRUGS (10)
  1. GLUCOPHAGE [Suspect]
     Dosage: REDUCED TO 1000MG BID.
  2. AMARYL [Concomitant]
  3. ZESTRIL [Concomitant]
  4. LEVOTHYROXINE SODIUM [Concomitant]
  5. PREMARIN [Concomitant]
  6. VITAMIN B-12 [Concomitant]
  7. CALCIUM + VITAMIN D [Concomitant]
  8. HUMULIN N [Concomitant]
     Dates: end: 20080421
  9. LANTUS [Concomitant]
     Dosage: 1 DOSAGE FORM = 20UNITS.
     Dates: start: 20080421
  10. ECHINACEA [Concomitant]

REACTIONS (1)
  - BLOOD GLUCOSE FLUCTUATION [None]
